FAERS Safety Report 7577724-0 (Version None)
Quarter: 2011Q2

REPORT INFORMATION
  Report Type: 
  Country: None (occurrence: None)
  Receive Date: 20110628
  Receipt Date: 20110621
  Transmission Date: 20111010
  Serious: Yes (Hospitalization, Other)
  Sender: FDA-Public Use
  Company Number: CL-PFIZER INC-2011138741

PATIENT
  Age: 8 Year
  Sex: Male
  Weight: 26 kg

DRUGS (3)
  1. AMIKACIN [Concomitant]
     Dosage: 1 G, UNK
  2. ECALTA [Suspect]
     Dosage: 40 MG, UNK
     Route: 042
     Dates: start: 20110412
  3. MEROPENEM [Concomitant]
     Dosage: 1 G, UNK

REACTIONS (5)
  - PYREXIA [None]
  - RESPIRATORY DISORDER [None]
  - HYPERTENSION [None]
  - ANGIOEDEMA [None]
  - ANAPHYLACTIC SHOCK [None]
